FAERS Safety Report 21562572 (Version 1)
Quarter: 2022Q4

REPORT INFORMATION
  Report Type: Spontaneous
  Country: US (occurrence: US)
  Receive Date: 20221107
  Receipt Date: 20221107
  Transmission Date: 20230113
  Serious: Yes (Other)
  Sender: FDA-Public Use
  Company Number: US-SA-SAC20221103001536

PATIENT
  Age: 62 Year
  Sex: Male

DRUGS (1)
  1. ZANTAC [Suspect]
     Active Substance: RANITIDINE HYDROCHLORIDE
     Dosage: UNKNOWN AT THIS TIME FREQUENCY : OTHER
     Dates: start: 201801, end: 202001

REACTIONS (2)
  - Hepatic cancer [Unknown]
  - Lung neoplasm malignant [Unknown]

NARRATIVE: CASE EVENT DATE: 20200101
